FAERS Safety Report 22206404 (Version 1)
Quarter: 2023Q2

REPORT INFORMATION
  Report Type: Report from Study
  Country: RU (occurrence: RU)
  Receive Date: 20230413
  Receipt Date: 20230413
  Transmission Date: 20230722
  Serious: Yes (Other)
  Sender: FDA-Public Use
  Company Number: RU-002147023-NVSC2023RU083996

PATIENT
  Age: 67 Year
  Sex: Female

DRUGS (2)
  1. EVEROLIMUS [Suspect]
     Active Substance: EVEROLIMUS
     Indication: Breast cancer stage IV
     Dosage: 10 MG, QD (6 MONTHS)
     Route: 065
     Dates: start: 202112, end: 202205
  2. EXEMESTANE [Concomitant]
     Active Substance: EXEMESTANE
     Indication: Product used for unknown indication
     Dosage: 25 MG, QD (6 MONTHS)
     Route: 065
     Dates: start: 202112, end: 202205

REACTIONS (2)
  - Breast cancer stage IV [Unknown]
  - Metastases to pleura [Unknown]
